FAERS Safety Report 8995107 (Version 1)
Quarter: 2012Q4

REPORT INFORMATION
  Report Type: Spontaneous
  Country: US (occurrence: None)
  Receive Date: 20121228
  Receipt Date: 20121228
  Transmission Date: 20130627
  Serious: Yes (Hospitalization)
  Sender: FDA-Public Use
  Company Number: None

PATIENT
  Age: 65 Year
  Sex: Male
  Weight: 96.7 kg

DRUGS (1)
  1. NATALIZUMAB [Suspect]
     Indication: MULTIPLE SCLEROSIS
     Dosage: 300 MG ONCE IV
     Route: 042
     Dates: start: 20121108, end: 20121108

REACTIONS (4)
  - Chills [None]
  - Stridor [None]
  - Pain [None]
  - Dyspnoea [None]
